FAERS Safety Report 16010094 (Version 1)
Quarter: 2019Q1

REPORT INFORMATION
  Report Type: Spontaneous
  Country: US (occurrence: US)
  Receive Date: 20190225
  Receipt Date: 20190225
  Transmission Date: 20190418
  Serious: Yes (Hospitalization)
  Sender: FDA-Public Use
  Company Number: US-SA-2019SA051605

PATIENT
  Sex: Male

DRUGS (1)
  1. PRALUENT [Suspect]
     Active Substance: ALIROCUMAB
     Dosage: UNK UNK, QOW
     Route: 060

REACTIONS (4)
  - Upper respiratory tract infection [Unknown]
  - Influenza like illness [Unknown]
  - Hypersensitivity [Unknown]
  - High density lipoprotein decreased [Unknown]
